FAERS Safety Report 18498997 (Version 1)
Quarter: 2020Q4

REPORT INFORMATION
  Report Type: Spontaneous
  Country: DE (occurrence: DE)
  Receive Date: 20201113
  Receipt Date: 20201113
  Transmission Date: 20210114
  Serious: Yes (Other)
  Sender: FDA-Public Use
  Company Number: DE-TEVA-2020-DE-1841783

PATIENT
  Age: 76 Year
  Sex: Male

DRUGS (9)
  1. LEVOFLOXACIN. [Suspect]
     Active Substance: LEVOFLOXACIN
     Indication: INFLAMMATORY MARKER INCREASED
     Route: 042
     Dates: start: 20200411, end: 20200418
  2. CRESTOR [Concomitant]
     Active Substance: ROSUVASTATIN CALCIUM
     Dosage: AFTER A STROKE, ALREADY DISCONTINUED
  3. BISOPROLOL 5MG [Concomitant]
     Dosage: AFTER A STROKE, ALREADY DISCONTINUED
  4. BIPRETERAX 5/1,25 [Concomitant]
     Dosage: AFTER A STROKE, ALREADY DISCONTINUED
  5. TRUSOPT-S 20MG/ML [Concomitant]
  6. ASS 100 [Concomitant]
     Active Substance: ASPIRIN
  7. LEVOFLOXACIN. [Suspect]
     Active Substance: LEVOFLOXACIN
     Indication: PYREXIA
  8. BISOPROLOL 2.5 MG [Concomitant]
     Active Substance: BISOPROLOL
     Dosage: AFTER A STROKE, ALREADY DISCONTINUED
  9. DEKRISTOL 20000 [Concomitant]
     Active Substance: CHOLECALCIFEROL
     Dosage: 1X / WEEK, UNIT DOSE : 1 DOSAGE FORMS

REACTIONS (4)
  - Tendon pain [Not Recovered/Not Resolved]
  - Gait inability [Unknown]
  - Condition aggravated [Not Recovered/Not Resolved]
  - Swelling [Not Recovered/Not Resolved]

NARRATIVE: CASE EVENT DATE: 202005
